FAERS Safety Report 4332757-2 (Version None)
Quarter: 2004Q1

REPORT INFORMATION
  Report Type: 
  Country: None (occurrence: None)
  Receive Date: 20040330
  Receipt Date: 20040322
  Transmission Date: 20041129
  Serious: Yes (Hospitalization)
  Sender: FDA-Public Use
  Company Number: 2004AC00043

PATIENT
  Age: 48 Year
  Sex: Female

DRUGS (2)
  1. PROPOFOL [Suspect]
     Indication: ANAESTHESIA
  2. ISOFLURANE [Concomitant]

REACTIONS (4)
  - CONVERSION DISORDER [None]
  - CONVULSION [None]
  - NODULE [None]
  - NUCLEAR MAGNETIC RESONANCE IMAGING ABNORMAL [None]
